FAERS Safety Report 24890086 (Version 1)
Quarter: 2025Q1

REPORT INFORMATION
  Report Type: Spontaneous
  Country: US (occurrence: None)
  Receive Date: 20250124
  Receipt Date: 20250124
  Transmission Date: 20250409
  Serious: Yes (Life-Threatening, Other)
  Sender: FDA-CTU
  Company Number: None

PATIENT
  Age: 64 Year
  Sex: Male
  Weight: 76.5 kg

DRUGS (3)
  1. MEMANTINE HYDROCHLORIDE [Suspect]
     Active Substance: MEMANTINE HYDROCHLORIDE
     Indication: Dementia
     Dosage: 60 TABLETS EVERY 12 HOURS ORAL
     Route: 048
     Dates: start: 20241223, end: 20250109
  2. VITAMINS [Concomitant]
     Active Substance: VITAMINS
  3. NAPROXEN [Concomitant]
     Active Substance: NAPROXEN

REACTIONS (8)
  - Dizziness [None]
  - Fall [None]
  - Loss of consciousness [None]
  - Tooth fracture [None]
  - Jaw fracture [None]
  - Concussion [None]
  - Endodontic procedure [None]
  - Therapy cessation [None]

NARRATIVE: CASE EVENT DATE: 20241228
